FAERS Safety Report 17994982 (Version 1)
Quarter: 2020Q3

REPORT INFORMATION
  Report Type: Spontaneous
  Country: FR (occurrence: FR)
  Receive Date: 20200708
  Receipt Date: 20200708
  Transmission Date: 20201103
  Serious: Yes (Other)
  Sender: FDA-Public Use
  Company Number: FR-MYLANLABS-2008S1004226

PATIENT
  Age: 24 Year
  Sex: Female

DRUGS (1)
  1. MINOCYCLINE [Suspect]
     Active Substance: MINOCYCLINE HYDROCHLORIDE
     Indication: ACNE
     Dosage: UNK

REACTIONS (8)
  - Drug reaction with eosinophilia and systemic symptoms [Recovered/Resolved]
  - Pigmentation disorder [Recovered/Resolved]
  - Rash [Recovered/Resolved]
  - Cardiomyopathy [Recovered/Resolved]
  - Lymphadenopathy [Recovered/Resolved]
  - Pericardial disease [Recovered/Resolved]
  - Hepatic function abnormal [Recovered/Resolved]
  - Face oedema [Recovered/Resolved]
